FAERS Safety Report 23947901 (Version 2)
Quarter: 2024Q2

REPORT INFORMATION
  Report Type: Report from Study
  Country: CA (occurrence: CA)
  Receive Date: 20240606
  Receipt Date: 20240610
  Transmission Date: 20240716
  Serious: Yes (Death)
  Sender: FDA-Public Use
  Company Number: CA-BIOGEN-2024BI01268035

PATIENT
  Sex: Female

DRUGS (1)
  1. DALFAMPRIDINE [Suspect]
     Active Substance: DALFAMPRIDINE
     Indication: Multiple sclerosis
     Route: 050
     Dates: start: 20160520

REACTIONS (3)
  - Fall [Fatal]
  - Hip fracture [Fatal]
  - Musculoskeletal procedural complication [Fatal]

NARRATIVE: CASE EVENT DATE: 20230101
